FAERS Safety Report 19122245 (Version 4)
Quarter: 2021Q3

REPORT INFORMATION
  Report Type: Report from Study
  Country: GB (occurrence: GB)
  Receive Date: 20210412
  Receipt Date: 20210906
  Transmission Date: 20211014
  Serious: Yes (Hospitalization)
  Sender: FDA-Public Use
  Company Number: NVSC2021GB041372

PATIENT
  Age: 43 Year
  Sex: Female

DRUGS (1)
  1. ERELZI [Suspect]
     Active Substance: ETANERCEPT-SZZS
     Indication: RHEUMATOID ARTHRITIS
     Dosage: 50 MG, QW(AS DIRECTED)
     Route: 065
     Dates: start: 20201124

REACTIONS (4)
  - SARS-CoV-2 test positive [Unknown]
  - Device malfunction [Unknown]
  - Device issue [Unknown]
  - Product dose omission issue [Unknown]
